FAERS Safety Report 4402048-X (Version None)
Quarter: 2004Q3

REPORT INFORMATION
  Report Type: 
  Country: None (occurrence: None)
  Receive Date: 20040719
  Receipt Date: 20040719
  Transmission Date: 20050211
  Serious: Yes (Other)
  Sender: FDA-Public Use
  Company Number: None

PATIENT
  Age: 9 Month
  Sex: Female
  Weight: 72.5755 kg

DRUGS (4)
  1. PAROXETINE HCL [Suspect]
     Indication: ANXIETY
     Dosage: 1 TABLET 1 PER DAY ORAL
     Route: 048
     Dates: start: 20031101, end: 20041101
  2. PAROXETINE HCL [Suspect]
     Indication: DEPRESSION
     Dosage: 1 TABLET 1 PER DAY ORAL
     Route: 048
     Dates: start: 20031101, end: 20041101
  3. PAXIL [Concomitant]
  4. XANAX [Concomitant]

REACTIONS (7)
  - ABNORMAL DREAMS [None]
  - DIZZINESS [None]
  - HEADACHE [None]
  - MOOD SWINGS [None]
  - NAUSEA [None]
  - NIGHT SWEATS [None]
  - PARAESTHESIA [None]
